FAERS Safety Report 7298180-6 (Version None)
Quarter: 2011Q1

REPORT INFORMATION
  Report Type: 
  Country: None (occurrence: None)
  Receive Date: 20110214
  Receipt Date: 20110214
  Transmission Date: 20110831
  Serious: Yes (Other)
  Sender: FDA-Public Use
  Company Number: None

PATIENT
  Age: 37 Year
  Sex: Female

DRUGS (1)
  1. SERTRALINE HYDROCHLORIDE [Suspect]
     Dosage: 100MG ONCE PO
     Route: 048
     Dates: start: 20081001, end: 20110210

REACTIONS (6)
  - DEPRESSED MOOD [None]
  - PRODUCT SUBSTITUTION ISSUE [None]
  - NAUSEA [None]
  - DIZZINESS [None]
  - HYPOTENSION [None]
  - FEELING ABNORMAL [None]
